FAERS Safety Report 5004058-0 (Version None)
Quarter: 2006Q2

REPORT INFORMATION
  Report Type: 
  Country: None (occurrence: None)
  Receive Date: 20060515
  Receipt Date: 20060515
  Transmission Date: 20061013
  Serious: Yes (Other)
  Sender: FDA-Public Use
  Company Number: None

PATIENT
  Age: 6 Month
  Sex: Female
  Weight: 5.4432 kg

DRUGS (1)
  1. DIAMOX [Suspect]
     Indication: EYE DISORDER
     Dosage: 2.5 ML   THREE TIMES A DAY  PO
     Route: 048
     Dates: start: 20051001, end: 20060301

REACTIONS (4)
  - ACIDOSIS [None]
  - CONTRAINDICATION TO MEDICAL TREATMENT [None]
  - GROWTH RETARDATION [None]
  - PHARMACEUTICAL PRODUCT COMPLAINT [None]
